FAERS Safety Report 14430771 (Version 1)
Quarter: 2018Q1

REPORT INFORMATION
  Report Type: Spontaneous
  Country: US (occurrence: US)
  Receive Date: 20180124
  Receipt Date: 20180124
  Transmission Date: 20180509
  Serious: Yes (Hospitalization, Other)
  Sender: FDA-Public Use
  Company Number: US-009507513-1801USA007610

PATIENT
  Age: 91 Year
  Sex: Male
  Weight: 63.5 kg

DRUGS (2)
  1. ZOCOR [Suspect]
     Active Substance: SIMVASTATIN
     Indication: CEREBROVASCULAR ACCIDENT PROPHYLAXIS
  2. ZOCOR [Suspect]
     Active Substance: SIMVASTATIN
     Indication: BLOOD CHOLESTEROL INCREASED
     Dosage: UNK
     Route: 048

REACTIONS (10)
  - Stent placement [Recovered/Resolved]
  - Arterial occlusive disease [Recovered/Resolved]
  - Psoriasis [Unknown]
  - Angioplasty [Unknown]
  - Hypertension [Unknown]
  - Prostate cancer [Unknown]
  - Stent placement [Unknown]
  - Angioplasty [Recovered/Resolved with Sequelae]
  - Squamous cell carcinoma [Unknown]
  - Chest pain [Recovered/Resolved]

NARRATIVE: CASE EVENT DATE: 2007
